FAERS Safety Report 12069212 (Version 2)
Quarter: 2016Q2

REPORT INFORMATION
  Report Type: Report from Study
  Country: US (occurrence: US)
  Receive Date: 20160211
  Receipt Date: 20160629
  Transmission Date: 20160815
  Serious: Yes (Hospitalization)
  Sender: FDA-Public Use
  Company Number: US-PFIZER INC-2016075558

PATIENT
  Age: 69 Year
  Sex: Female
  Weight: 63.4 kg

DRUGS (10)
  1. KEYTRUDA [Suspect]
     Active Substance: PEMBROLIZUMAB
     Indication: RENAL CELL CARCINOMA
     Dosage: 2 MG/KG, Q3WEEKS
     Route: 042
     Dates: start: 20150708, end: 20160114
  2. DRISDOL [Concomitant]
     Active Substance: ERGOCALCIFEROL
     Indication: NUTRITIONAL SUPPLEMENTATION
     Dosage: UNK
     Route: 048
     Dates: start: 20101105
  3. HYDROCORTISONE. [Concomitant]
     Active Substance: HYDROCORTISONE
     Indication: PALMAR-PLANTAR ERYTHRODYSAESTHESIA SYNDROME
     Dosage: HYDROCORTISONE 2.5%
     Route: 061
     Dates: start: 20151022
  4. AMOXICILLIN. [Concomitant]
     Active Substance: AMOXICILLIN
     Indication: TOOTH ABSCESS
     Dosage: UNK
     Dates: start: 20160118, end: 20160128
  5. DIOVAN HCT [Concomitant]
     Active Substance: HYDROCHLOROTHIAZIDE\VALSARTAN
     Indication: HYPERTENSION
     Dosage: UNK
     Route: 048
     Dates: start: 20100524
  6. INLYTA [Suspect]
     Active Substance: AXITINIB
     Indication: RENAL CELL CARCINOMA
     Dosage: 3 MG, 2X/DAY
     Route: 048
     Dates: start: 20150708, end: 20160203
  7. PRILOSEC [Concomitant]
     Active Substance: OMEPRAZOLE MAGNESIUM
     Indication: GASTROOESOPHAGEAL REFLUX DISEASE
     Dosage: UNK
     Route: 048
     Dates: start: 20150617
  8. TRANDATE [Concomitant]
     Active Substance: LABETALOL HYDROCHLORIDE
     Indication: HYPERTENSION
     Dosage: UNK
     Route: 048
     Dates: start: 20150731
  9. FOSAMAX [Concomitant]
     Active Substance: ALENDRONATE SODIUM
     Indication: OSTEOPOROSIS
     Dosage: UNK
     Route: 048
     Dates: start: 20130617
  10. ALUMIN HYDROXIDE/DIPHENHYDRA HCL/LIDOCAIN HCL/MG HYDROXIDE/SIMETHICONE [Concomitant]
     Indication: MUCOSAL INFLAMMATION
     Dosage: UNK
     Route: 048
     Dates: start: 20150807

REACTIONS (1)
  - Diarrhoea [Recovered/Resolved]

NARRATIVE: CASE EVENT DATE: 20160204
